FAERS Safety Report 5107068-8 (Version None)
Quarter: 2006Q3

REPORT INFORMATION
  Report Type: 
  Country: None (occurrence: None)
  Receive Date: 20060913
  Receipt Date: 20060829
  Transmission Date: 20061208
  Serious: Yes (Other)
  Sender: FDA-Public Use
  Company Number: PHBS2006PH13110

PATIENT
  Sex: Male

DRUGS (1)
  1. VISUDYNE [Suspect]
     Dates: start: 20060824, end: 20060824

REACTIONS (1)
  - JAUNDICE [None]
